FAERS Safety Report 10591878 (Version 2)
Quarter: 2014Q4

REPORT INFORMATION
  Report Type: Spontaneous
  Country: US (occurrence: US)
  Receive Date: 20141119
  Receipt Date: 20141124
  Transmission Date: 20150529
  Serious: Yes (Hospitalization, Other)
  Sender: FDA-Public Use
  Company Number: US-ACCORD-027110

PATIENT
  Age: 44 Year
  Sex: Female

DRUGS (1)
  1. TACROLIMUS. [Suspect]
     Active Substance: TACROLIMUS
     Indication: LIVER TRANSPLANT
     Dosage: TAKING 5 DAYS ORALLY (2.5 MG TWICE DAILY FOR 3 DAYS AND THEN 4.5 MG TWICE DAILY FOR 2 DAYS)
     Route: 048

REACTIONS (3)
  - Subarachnoid haemorrhage [Unknown]
  - Superficial siderosis of central nervous system [Unknown]
  - Posterior reversible encephalopathy syndrome [Recovered/Resolved with Sequelae]
